FAERS Safety Report 5906710-9 (Version None)
Quarter: 2008Q3

REPORT INFORMATION
  Report Type: 
  Country: None (occurrence: None)
  Receive Date: 20080930
  Receipt Date: 20080919
  Transmission Date: 20090109
  Serious: Yes (Death)
  Sender: FDA-Public Use
  Company Number: 97961

PATIENT
  Age: 19 Year
  Sex: Male

DRUGS (6)
  1. IBUPROFEN [Suspect]
     Dosage: ORAL
     Route: 048
  2. CYCLOBENZAPRINE HCL [Concomitant]
  3. PHENYLPROPANOLAMINE HCL [Concomitant]
  4. CHLORPHENIRAMINE MALEATE [Concomitant]
  5. PHENYTOIN [Concomitant]
  6. LIGNACAINE [Concomitant]

REACTIONS (3)
  - METABOLIC ACIDOSIS [None]
  - MULTIPLE DRUG OVERDOSE [None]
  - TACHYCARDIA [None]
